FAERS Safety Report 19753853 (Version 1)
Quarter: 2021Q3

REPORT INFORMATION
  Report Type: Report from Study
  Country: CA (occurrence: CA)
  Receive Date: 20210826
  Receipt Date: 20210826
  Transmission Date: 20211014
  Serious: Yes (Other)
  Sender: FDA-Public Use
  Company Number: CA-BRISTOL-MYERS SQUIBB COMPANY-BMS-2021-083851

PATIENT
  Age: 21 Year
  Sex: Female

DRUGS (1)
  1. ABATACEPT [Suspect]
     Active Substance: ABATACEPT
     Indication: JUVENILE IDIOPATHIC ARTHRITIS
     Dosage: 750 MILLIGRAM, Q4WK
     Route: 042
     Dates: start: 20171024

REACTIONS (5)
  - Dry skin [Not Recovered/Not Resolved]
  - Umbilical haemorrhage [Not Recovered/Not Resolved]
  - Ear infection [Not Recovered/Not Resolved]
  - Hypoaesthesia [Unknown]
  - Skin discolouration [Not Recovered/Not Resolved]
